FAERS Safety Report 9149766 (Version 1)
Quarter: 2013Q1

REPORT INFORMATION
  Report Type: Spontaneous
  Country: US (occurrence: US)
  Receive Date: 20130308
  Receipt Date: 20130308
  Transmission Date: 20140127
  Serious: No
  Sender: FDA-Public Use
  Company Number: US-ENDO PHARMACEUTICALS INC.-OPCR20120556

PATIENT
  Sex: Male
  Weight: 55.39 kg

DRUGS (4)
  1. OPANA ER 20MG [Suspect]
     Indication: INTERVERTEBRAL DISC PROTRUSION
     Route: 048
     Dates: start: 201204
  2. OPANA ER 20MG [Suspect]
     Indication: PAIN
  3. OPANA ER 20MG [Concomitant]
     Indication: INTERVERTEBRAL DISC PROTRUSION
     Route: 048
     Dates: end: 2012
  4. OPANA ER 20MG [Concomitant]
     Indication: PAIN

REACTIONS (3)
  - Medication residue present [Not Recovered/Not Resolved]
  - Weight decreased [Not Recovered/Not Resolved]
  - Drug ineffective [Not Recovered/Not Resolved]
